FAERS Safety Report 10905290 (Version 2)
Quarter: 2015Q1

REPORT INFORMATION
  Report Type: Spontaneous
  Country: BR (occurrence: BR)
  Receive Date: 20150311
  Receipt Date: 20150324
  Transmission Date: 20150721
  Serious: Yes (Other)
  Sender: FDA-Public Use
  Company Number: PHHY2015BR027208

PATIENT
  Sex: Female
  Weight: 89 kg

DRUGS (3)
  1. RASILEZ [Suspect]
     Active Substance: ALISKIREN
     Indication: HYPERTENSION
     Dosage: 1 DF (150/5 MG), QD
     Route: 048
     Dates: start: 2009, end: 2013
  2. RASILEZ [Suspect]
     Active Substance: ALISKIREN
     Dosage: 1 DF (300/5 MG), QD
     Route: 048
     Dates: start: 2013, end: 20141228
  3. NATRILIX [Concomitant]
     Active Substance: INDAPAMIDE
     Indication: HYPERTENSION
     Dosage: 1 DF, QD
     Route: 048
     Dates: start: 2013, end: 201412

REACTIONS (9)
  - Cerebrovascular accident [Recovered/Resolved]
  - Fatigue [Not Recovered/Not Resolved]
  - Blood pressure increased [Not Recovered/Not Resolved]
  - Blood pressure fluctuation [Not Recovered/Not Resolved]
  - Thirst [Not Recovered/Not Resolved]
  - Back pain [Not Recovered/Not Resolved]
  - Visual acuity reduced [Not Recovered/Not Resolved]
  - VIIth nerve paralysis [Recovered/Resolved]
  - Salivary hypersecretion [Not Recovered/Not Resolved]

NARRATIVE: CASE EVENT DATE: 2013
